FAERS Safety Report 5412054-4 (Version None)
Quarter: 2007Q3

REPORT INFORMATION
  Report Type: 
  Country: None (occurrence: None)
  Receive Date: 20070813
  Receipt Date: 20070802
  Transmission Date: 20080115
  Serious: Yes (Death)
  Sender: FDA-Public Use
  Company Number: US-AMGEN-US237010

PATIENT
  Sex: Male

DRUGS (2)
  1. NEUPOGEN [Suspect]
     Indication: CHEMOTHERAPY
     Route: 065
     Dates: start: 19900801, end: 19940101
  2. UNSPECIFIED ANTINEOPLASTIC AGENT [Concomitant]
     Route: 065
     Dates: start: 19900101

REACTIONS (5)
  - ARTHRALGIA [None]
  - BONE PAIN [None]
  - CANDIDIASIS [None]
  - HERPES ZOSTER [None]
  - THYMOMA [None]
